FAERS Safety Report 17338879 (Version 2)
Quarter: 2020Q1

REPORT INFORMATION
  Report Type: Report from Study
  Country: ES (occurrence: ES)
  Receive Date: 20200129
  Receipt Date: 20200218
  Transmission Date: 20200409
  Serious: Yes (Hospitalization, Other)
  Sender: FDA-Public Use
  Company Number: ES-GLAXOSMITHKLINE-ES2020TSO013641

PATIENT
  Age: 76 Year
  Sex: Female

DRUGS (22)
  1. DEXAMETHASONE. [Concomitant]
     Active Substance: DEXAMETHASONE
     Dosage: 4 MG, QD
     Route: 048
     Dates: start: 20200111
  2. NOLOTIL [Concomitant]
     Indication: GASTROINTESTINAL TOXICITY
     Dosage: 2 G, TID
     Route: 042
     Dates: start: 20191209
  3. MAGNOGENE [Concomitant]
     Dosage: 1 DF, QD
     Route: 048
     Dates: start: 201904
  4. OLMESARTAN MEDOXOMIL + HYDROCHLOROTHIAZIDE TABLETS [Concomitant]
     Indication: HYPERTENSION
     Dosage: 40 MG, QD
     Route: 048
     Dates: start: 201908
  5. NIRAPARIB [Suspect]
     Active Substance: NIRAPARIB
     Dosage: 200 MG, QD
     Route: 048
     Dates: end: 20191230
  6. DIPRODERM [Concomitant]
     Active Substance: BETAMETHASONE DIPROPIONATE
     Indication: DERMATITIS ACNEIFORM
     Dosage: 0.5 MG, QD
     Route: 061
     Dates: start: 20191213, end: 20191219
  7. EUTIROX [Concomitant]
     Active Substance: LEVOTHYROXINE SODIUM
     Indication: HYPOTHYROIDISM
     Dosage: 75 MG, QD
     Route: 048
     Dates: start: 2009
  8. OMEPRAZOLE. [Concomitant]
     Active Substance: OMEPRAZOLE
     Indication: PROPHYLAXIS
     Dosage: 20 MG, QD
     Route: 042
     Dates: start: 20191213
  9. COBIMETINIB. [Suspect]
     Active Substance: COBIMETINIB
     Dosage: 40 MG
     Route: 048
     Dates: end: 20191230
  10. DOXYCYCLINE. [Concomitant]
     Active Substance: DOXYCYCLINE
     Indication: DERMATITIS ACNEIFORM
     Dosage: 100 MG, QD
     Route: 048
     Dates: start: 20191213, end: 20191223
  11. ONDANSETRON [Concomitant]
     Active Substance: ONDANSETRON
     Dosage: 4 MG, QD
     Route: 048
     Dates: start: 20191230, end: 20200107
  12. ONDANSETRON [Concomitant]
     Active Substance: ONDANSETRON
     Dosage: 4 MG, QD
     Route: 048
     Dates: start: 20200111
  13. ZYLORIC [Concomitant]
     Active Substance: ALLOPURINOL
     Indication: HYPERURICAEMIA
     Dosage: 100 MG, QD
     Route: 048
     Dates: start: 201909
  14. NIRAPARIB [Suspect]
     Active Substance: NIRAPARIB
     Indication: OVARIAN CANCER
     Dosage: 200 MG, QD
     Route: 048
     Dates: start: 20191202
  15. ATEZOLIZUMAB. [Suspect]
     Active Substance: ATEZOLIZUMAB
     Indication: OVARIAN CANCER
     Dosage: 840 MG ON DAYS 1 AND 15 (+/-3 DAYS) OF EACH 28-DAY CYCLE
     Route: 042
     Dates: start: 20191202
  16. ATEZOLIZUMAB. [Suspect]
     Active Substance: ATEZOLIZUMAB
     Dosage: 840 MG ON DAYS 1 AND 15 (+/-3 DAYS) OF EACH 28-DAY CYCLE
     Route: 042
     Dates: end: 20191230
  17. FLUTICREM [Concomitant]
     Indication: DERMATITIS ACNEIFORM
     Dosage: 0.5 MG, BID
     Route: 061
     Dates: start: 20191223
  18. HALOPERIDOL. [Concomitant]
     Active Substance: HALOPERIDOL
     Dosage: 2 MG, QD
     Route: 048
     Dates: start: 20200111
  19. OMEPRAZOLE. [Concomitant]
     Active Substance: OMEPRAZOLE
     Dosage: 20 MG, QD
     Route: 048
     Dates: start: 20191223
  20. PRIMPERAN [Concomitant]
     Active Substance: METOCLOPRAMIDE HYDROCHLORIDE
     Indication: VOMITING
     Dosage: 10 MG, QD
     Route: 042
     Dates: start: 20191212
  21. COBIMETINIB. [Suspect]
     Active Substance: COBIMETINIB
     Indication: OVARIAN CANCER
     Dosage: 60 MG ON DAYS 1-21 OF EACH 28-DAY CYCLE
     Route: 048
     Dates: start: 20191202
  22. LOPERAMIDE [Concomitant]
     Active Substance: LOPERAMIDE
     Dosage: 20 MG
     Dates: start: 20191230, end: 20200103

REACTIONS (1)
  - Renal failure [Recovered/Resolved]

NARRATIVE: CASE EVENT DATE: 20200114
